FAERS Safety Report 12864673 (Version 6)
Quarter: 2018Q2

REPORT INFORMATION
  Report Type: Other
  Country: JP (occurrence: JP)
  Receive Date: 20161020
  Receipt Date: 20180424
  Transmission Date: 20180711
  Serious: Yes (Life-Threatening, Hospitalization)
  Sender: FDA-Public Use
  Company Number: JP-ACTELION-A-CH2016-143922

PATIENT
  Age: 18 Year
  Sex: Female
  Weight: 38.3 kg

DRUGS (12)
  1. ADCIRCA [Concomitant]
     Active Substance: TADALAFIL
  2. LASIX [Concomitant]
     Active Substance: FUROSEMIDE
  3. FERROUS CITRATE NA [Concomitant]
     Active Substance: SODIUM FERROUS CITRATE
  4. OXYGEN. [Concomitant]
     Active Substance: OXYGEN
  5. EPOPROSTENOL ACT [Suspect]
     Active Substance: EPOPROSTENOL
     Indication: PULMONARY ARTERIAL HYPERTENSION
     Dosage: 0.5 NG/KG, PER MIN
     Route: 042
     Dates: start: 20150323
  6. EPOPROSTENOL ACT [Suspect]
     Active Substance: EPOPROSTENOL
     Dosage: 28.9 NG/KG, PER MIN
     Route: 042
     Dates: start: 20150516
  7. TRACLEER [Concomitant]
     Active Substance: BOSENTAN
     Indication: PULMONARY ARTERIAL HYPERTENSION
     Dosage: 62.5 MG, UNK
  8. EPOPROSTENOL ACT [Suspect]
     Active Substance: EPOPROSTENOL
     Dosage: 24.5 NG/KG, PER MIN
     Route: 042
     Dates: start: 20150428
  9. EPOPROSTENOL ACT [Suspect]
     Active Substance: EPOPROSTENOL
     Dosage: 36.9 NG, PER MIN
     Route: 042
     Dates: start: 20150707, end: 20150915
  10. ALDACTONE [Concomitant]
     Active Substance: SPIRONOLACTONE
  11. EPOPROSTENOL ACT [Suspect]
     Active Substance: EPOPROSTENOL
     Dosage: 34.9 NG/KG, PER MIN
     Route: 042
     Dates: start: 20150623
  12. GLUCONSAN K [Concomitant]
     Active Substance: POTASSIUM GLUCONATE

REACTIONS (9)
  - Therapeutic response decreased [Unknown]
  - Haemoptysis [Recovered/Resolved]
  - Platelet count decreased [Recovering/Resolving]
  - Platelet transfusion [Unknown]
  - Device dislocation [Recovered/Resolved]
  - Haemodynamic test abnormal [Unknown]
  - Pulmonary oedema [Recovering/Resolving]
  - Therapeutic embolisation [Unknown]
  - Pulmonary haemorrhage [Recovered/Resolved]

NARRATIVE: CASE EVENT DATE: 20150407
